FAERS Safety Report 6934413-0 (Version None)
Quarter: 2010Q3

REPORT INFORMATION
  Report Type: 
  Country: None (occurrence: None)
  Receive Date: 20100820
  Receipt Date: 20100813
  Transmission Date: 20110219
  Serious: Yes (Death)
  Sender: FDA-Public Use
  Company Number: A0876873A

PATIENT
  Sex: Female

DRUGS (2)
  1. SERETIDE [Suspect]
     Indication: PRODUCT USED FOR UNKNOWN INDICATION
     Route: 055
  2. NO CONCURRENT MEDICATION [Concomitant]

REACTIONS (1)
  - PNEUMONIA [None]
